FAERS Safety Report 4592274-1 (Version None)
Quarter: 2005Q1

REPORT INFORMATION
  Report Type: 
  Country: None (occurrence: None)
  Receive Date: 20050228
  Receipt Date: 20041112
  Transmission Date: 20050727
  Serious: No
  Sender: FDA-Public Use
  Company Number: US-BRISTOL-MYERS SQUIBB COMPANY-12764205

PATIENT
  Age: 79 Year
  Sex: Female

DRUGS (3)
  1. ABILIFY [Suspect]
     Dosage: 5 MG/DAY FROM 13-OCT-04, INCREASED TO 7.5 MG/DAY ON 04-NOV-04
     Route: 048
     Dates: start: 20041013
  2. NEURONTIN [Concomitant]
  3. SONATA [Concomitant]
     Indication: SLEEP DISORDER

REACTIONS (1)
  - SALIVARY HYPERSECRETION [None]
